FAERS Safety Report 25603191 (Version 1)
Quarter: 2025Q3

REPORT INFORMATION
  Report Type: Report from Study
  Country: JP (occurrence: JP)
  Receive Date: 20250724
  Receipt Date: 20250724
  Transmission Date: 20251020
  Serious: Yes (Death)
  Sender: SHIONOGI
  Company Number: JP-shionogi-202500007528

PATIENT
  Age: 63 Year
  Sex: Male
  Weight: 64.2 kg

DRUGS (10)
  1. CEFIDEROCOL [Suspect]
     Active Substance: CEFIDEROCOL
     Indication: Sepsis
     Route: 041
     Dates: start: 20250124, end: 20250206
  2. CEFIDEROCOL [Suspect]
     Active Substance: CEFIDEROCOL
     Dosage: RESUMED
     Route: 041
     Dates: start: 20250221, end: 20250322
  3. PREDONINE [Concomitant]
     Active Substance: PREDNISOLONE
     Indication: Product used for unknown indication
     Route: 065
     Dates: end: 20250207
  4. VANCOMYCIN [Concomitant]
     Active Substance: VANCOMYCIN
     Indication: Sepsis
     Dosage: SINCE MORE THAN 2 WEEKS BEFORE THE START OF FETROJA
     Route: 065
     Dates: end: 20250131
  5. MEROPENEM [Concomitant]
     Active Substance: MEROPENEM
     Indication: Sepsis
     Dosage: SINCE MORE THAN 2 WEEKS BEFORE THE START OF FETROJA
     Route: 065
     Dates: end: 20250117
  6. METRONIDAZOLE [Concomitant]
     Active Substance: METRONIDAZOLE
     Indication: Sepsis
     Route: 065
     Dates: start: 20250117, end: 20250210
  7. TRISENOX [Concomitant]
     Active Substance: ARSENIC TRIOXIDE
     Indication: Product used for unknown indication
     Route: 065
     Dates: start: 20250124, end: 20250222
  8. FENTANYL [Concomitant]
     Active Substance: FENTANYL
     Indication: Product used for unknown indication
     Route: 065
     Dates: end: 20250206
  9. DEXMEDETOMIDINE [Concomitant]
     Active Substance: DEXMEDETOMIDINE
     Indication: Adverse event
     Route: 065
     Dates: start: 20250203, end: 20250205
  10. LANDIOLOL HYDROCHLORIDE [Concomitant]
     Active Substance: LANDIOLOL HYDROCHLORIDE
     Indication: Product used for unknown indication
     Route: 065
     Dates: end: 20250320

REACTIONS (2)
  - Acute myeloid leukaemia [Fatal]
  - Fungaemia [Fatal]

NARRATIVE: CASE EVENT DATE: 20250323
